FAERS Safety Report 5994990-3 (Version None)
Quarter: 2008Q4

REPORT INFORMATION
  Report Type: 
  Country: None (occurrence: None)
  Receive Date: 20081212
  Receipt Date: 20080919
  Transmission Date: 20090506
  Serious: No
  Sender: FDA-Public Use
  Company Number: US-ABBOTT-08P-163-0477424-00

PATIENT
  Sex: Female
  Weight: 74.91 kg

DRUGS (10)
  1. HUMIRA [Suspect]
     Indication: CROHN'S DISEASE
     Route: 050
  2. METHOTREXATE [Concomitant]
     Indication: CROHN'S DISEASE
     Dosage: 2 TABS EVERY DAY EXCEPT SUNDAY
     Route: 048
  3. SAMEICLOVIR [Concomitant]
     Indication: INFECTION
     Route: 048
  4. PENTASSA [Concomitant]
     Indication: CROHN'S DISEASE
     Dosage: 2-6 CAPSULES AS NEEDED (1-3 GRAMS DAILY)
     Route: 048
  5. LEVOCETIRIZINE DIHYDROCHLORIDE [Concomitant]
     Indication: HYPERSENSITIVITY
     Route: 048
  6. PRIMROSE HIP [Concomitant]
     Indication: SUPPLEMENTATION THERAPY
     Route: 048
  7. FISH OIL [Concomitant]
     Indication: SUPPLEMENTATION THERAPY
     Route: 048
  8. ANAMANTAL HC CREAM [Concomitant]
     Indication: INFLAMMATION
     Dosage: RECTAL AREA AS NEEDED
     Route: 061
  9. XOPONEX [Concomitant]
     Indication: DYSPNOEA
     Dosage: 125/3 MILLILITERS AS NEEDED
     Route: 055
  10. METOCLOPRAMIDE [Concomitant]
     Indication: GASTRIC DISORDER
     Route: 048

REACTIONS (4)
  - HOT FLUSH [None]
  - LOSS OF CONSCIOUSNESS [None]
  - UPPER RESPIRATORY TRACT INFECTION [None]
  - VITAMIN D DECREASED [None]
